FAERS Safety Report 14426920 (Version 1)
Quarter: 2018Q1

REPORT INFORMATION
  Report Type: Report from Study
  Country: RU (occurrence: RU)
  Receive Date: 20180123
  Receipt Date: 20180123
  Transmission Date: 20180509
  Serious: Yes (Hospitalization, Disabling)
  Sender: FDA-Public Use
  Company Number: RU-BAYER-2018-012032

PATIENT
  Age: 52 Year
  Sex: Female
  Weight: 107 kg

DRUGS (1)
  1. ANGELIQ MICRO [Suspect]
     Active Substance: DROSPIRENONE\ESTRADIOL
     Indication: HORMONE REPLACEMENT THERAPY
     Dosage: 0.5 MG, QD
     Dates: start: 20170630, end: 20171206

REACTIONS (2)
  - Pancreatitis chronic [Recovering/Resolving]
  - Cholecystitis chronic [Recovering/Resolving]

NARRATIVE: CASE EVENT DATE: 20171204
